FAERS Safety Report 19130415 (Version 3)
Quarter: 2021Q2

REPORT INFORMATION
  Report Type: Report from Study
  Country: US (occurrence: US)
  Receive Date: 20210414
  Receipt Date: 20210515
  Transmission Date: 20210717
  Serious: Yes (Other)
  Sender: FDA-Public Use
  Company Number: US-JNJFOC-20210414881

PATIENT
  Age: 62 Year
  Sex: Female
  Weight: 95.5 kg

DRUGS (5)
  1. JANSSEN COVID?19 VACCINE [Suspect]
     Active Substance: AD26.COV2.S
     Indication: PRODUCT USED FOR UNKNOWN INDICATION
     Route: 065
     Dates: start: 20210325
  2. JANSSEN COVID?19 VACCINE [Suspect]
     Active Substance: AD26.COV2.S
     Route: 065
     Dates: start: 20210422
  3. MACITENTAN [Suspect]
     Active Substance: MACITENTAN
     Indication: PULMONARY ARTERIAL HYPERTENSION
     Route: 048
  4. SELEXIPAG [Suspect]
     Active Substance: SELEXIPAG
     Route: 048
  5. SELEXIPAG [Suspect]
     Active Substance: SELEXIPAG
     Indication: PULMONARY ARTERIAL HYPERTENSION
     Route: 048

REACTIONS (12)
  - Pollakiuria [Unknown]
  - Influenza like illness [Unknown]
  - Pruritus [Unknown]
  - Malaise [Unknown]
  - Diarrhoea [Unknown]
  - Poor quality sleep [Unknown]
  - Pain in extremity [Unknown]
  - Irritable bowel syndrome [Unknown]
  - Pyrexia [Unknown]
  - Sensory disturbance [Unknown]
  - Diverticulitis [Unknown]
  - Decreased appetite [Unknown]

NARRATIVE: CASE EVENT DATE: 2021
